FAERS Safety Report 9240699 (Version 1)
Quarter: 2013Q2

REPORT INFORMATION
  Report Type: Spontaneous
  Country: US (occurrence: US)
  Receive Date: 20130418
  Receipt Date: 20130418
  Transmission Date: 20140414
  Serious: Yes (Hospitalization)
  Sender: FDA-Public Use
  Company Number: US-SANOFI-AVENTIS-2012SA090137

PATIENT
  Age: 78 Year
  Sex: Female
  Weight: 52.2 kg

DRUGS (20)
  1. LOVENOX [Suspect]
     Indication: DEEP VEIN THROMBOSIS
     Route: 065
  2. COUMADIN [Suspect]
     Indication: DEEP VEIN THROMBOSIS
     Route: 065
  3. SOLU-MEDROL [Concomitant]
     Route: 042
  4. PLACEBO [Concomitant]
     Indication: RHEUMATOID ARTHRITIS
     Dosage: PATIENT WITHDREW CONSENT FROM STUDY MEDICATION, FREQUENCY- SD
     Route: 042
     Dates: start: 20071206, end: 20090206
  5. METHOTREXATE [Concomitant]
     Dosage: TAKEN FROM: AUG-2007 E
     Dates: start: 200708
  6. CLONIDINE [Concomitant]
     Dosage: TAKEN FROM: AUG-2007 E
     Dates: start: 200708
  7. AVAPRO [Concomitant]
     Dosage: TAKEN FROM: JUN-2006 E
     Dates: start: 200606
  8. PROTONIX [Concomitant]
     Dosage: TAKEN FROM: 1999 E
     Dates: start: 1999
  9. PROZAC [Concomitant]
     Dosage: TAKEN FROM: 1992 E
     Dates: start: 1992
  10. FOLIC ACID [Concomitant]
     Dosage: TAKEN FROM: AUG-2007 E
     Dates: start: 200708
  11. AMLODIPINE BESILATE [Concomitant]
     Dosage: TAKEN FROM: NOV-2006 E
     Dates: start: 200611
  12. ESTROGENS CONJUGATED [Concomitant]
     Dates: start: 2003
  13. GLUCOPHAGE [Concomitant]
     Dates: start: 1998
  14. PREDNISONE [Concomitant]
     Dates: start: 200606
  15. PREDNISONE [Concomitant]
     Dosage: DOSE TEMPORARILY INCREASED
  16. METOPROLOL [Concomitant]
     Dosage: TAKEN FROM: JUL 2007 E
     Dates: start: 200707
  17. IRON [Concomitant]
     Dosage: TAKEN FROM: MAR-2006 E
     Dates: start: 200603
  18. VICODIN [Concomitant]
     Dosage: DAILY DOSE: TDD REPORTED AS 5/500 (UNITS: UNSPECIFIED)
     Dates: start: 1995
  19. PROPOXYPHENE [Concomitant]
     Dosage: TAKEN FROM: 2005 E? DAILY DOSE: TDD REPORTED AS 100/650 (UNITS: UNSPECIFIED)
     Dates: start: 2005
  20. GLIPIZIDE [Concomitant]
     Dates: start: 20080718

REACTIONS (1)
  - Toxicity to various agents [Recovered/Resolved]
